FAERS Safety Report 7927761-9 (Version None)
Quarter: 2011Q4

REPORT INFORMATION
  Report Type: 
  Country: None (occurrence: None)
  Receive Date: 20111118
  Receipt Date: 20111103
  Transmission Date: 20120403
  Serious: Yes (Other)
  Sender: FDA-Public Use
  Company Number: US-ALEXION-A201101712

PATIENT
  Sex: Female

DRUGS (2)
  1. PNEUMOCOCCAL VACCINE [Concomitant]
     Indication: IMMUNISATION
     Dosage: UNK
     Dates: start: 20080521, end: 20080521
  2. SOLIRIS [Suspect]
     Indication: PAROXYSMAL NOCTURNAL HAEMOGLOBINURIA

REACTIONS (1)
  - MENINGOCOCCAL INFECTION [None]
